FAERS Safety Report 20533078 (Version 1)
Quarter: 2022Q1

REPORT INFORMATION
  Report Type: Spontaneous
  Country: US (occurrence: US)
  Receive Date: 20220301
  Receipt Date: 20220301
  Transmission Date: 20220423
  Serious: Yes (Other)
  Sender: FDA-Public Use
  Company Number: US-AMERICAN REGENT INC-2022000485

PATIENT
  Age: 39 Year
  Sex: Female
  Weight: 99.32 kg

DRUGS (14)
  1. VENOFER [Suspect]
     Active Substance: IRON SUCROSE
     Indication: Iron deficiency anaemia
     Dosage: 300 MG IN SODIUM CHLORIDE 0.9 % 250 ML
     Route: 042
     Dates: start: 20180212, end: 20180212
  2. VENOFER [Suspect]
     Active Substance: IRON SUCROSE
     Indication: Anaemia of pregnancy
     Dosage: 300 MG IN SODIUM CHLORIDE 0.9 % 250 ML
     Route: 042
     Dates: start: 20180215, end: 20180215
  3. VENOFER [Suspect]
     Active Substance: IRON SUCROSE
     Dosage: 300 MG IN SODIUM CHLORIDE 0.9 % 250 ML
     Route: 042
     Dates: start: 20180219, end: 20180219
  4. VENOFER [Suspect]
     Active Substance: IRON SUCROSE
     Dosage: 300 MG IN SODIUM CHLORIDE 0.9 % 250 ML
     Route: 042
     Dates: start: 20180222, end: 20180222
  5. VENOFER [Suspect]
     Active Substance: IRON SUCROSE
     Dosage: 300 MG IN SODIUM CHLORIDE 0.9 % 250 ML
     Route: 042
     Dates: start: 20180226, end: 20180226
  6. VENOFER [Suspect]
     Active Substance: IRON SUCROSE
     Dosage: 300 MG IN SODIUM CHLORIDE 0.9 % 250 ML
     Route: 042
     Dates: start: 20180301, end: 20180301
  7. VENOFER [Suspect]
     Active Substance: IRON SUCROSE
     Dosage: 300 MG IN SODIUM CHLORIDE 0.9 % 250 ML
     Route: 042
     Dates: start: 20180305, end: 20180305
  8. VENOFER [Suspect]
     Active Substance: IRON SUCROSE
     Dosage: 300 MG IN SODIUM CHLORIDE 0.9 % 250 ML
     Route: 042
     Dates: start: 20180308, end: 20180308
  9. VENOFER [Suspect]
     Active Substance: IRON SUCROSE
     Dosage: 300 MG IN SODIUM CHLORIDE 0.9 % 250 ML
     Route: 042
     Dates: start: 20180312, end: 20180312
  10. VENOFER [Suspect]
     Active Substance: IRON SUCROSE
     Dosage: 300 MG IN SODIUM CHLORIDE 0.9 % 250 ML
     Route: 042
     Dates: start: 20180319, end: 20180319
  11. VENOFER [Suspect]
     Active Substance: IRON SUCROSE
     Dosage: 300 MG IN SODIUM CHLORIDE 0.9 % 250 ML
     Route: 042
     Dates: start: 20180326, end: 20180326
  12. VENOFER [Suspect]
     Active Substance: IRON SUCROSE
     Dosage: 300 MG IN SODIUM CHLORIDE 0.9 % 250 ML
     Route: 042
     Dates: start: 20180402, end: 20180402
  13. VENOFER [Suspect]
     Active Substance: IRON SUCROSE
     Dosage: 300 MG IN SODIUM CHLORIDE 0.9 % 250 ML
     Route: 042
     Dates: start: 20180410, end: 20180410
  14. VENOFER [Suspect]
     Active Substance: IRON SUCROSE
     Dosage: 300 MG IN SODIUM CHLORIDE 0.9 % 250 ML
     Route: 042
     Dates: start: 20180417, end: 20180417

REACTIONS (3)
  - Foetal hypokinesia [Recovered/Resolved]
  - Gestational hypertension [Recovered/Resolved]
  - Maternal exposure during pregnancy [Recovered/Resolved]

NARRATIVE: CASE EVENT DATE: 20180212
